FAERS Safety Report 13583542 (Version 2)
Quarter: 2019Q4

REPORT INFORMATION
  Report Type: Report from Study
  Country: None (occurrence: BR)
  Receive Date: 20170526
  Receipt Date: 20191211
  Transmission Date: 20200122
  Serious: Yes (Disabling, Other)
  Sender: FDA-Public Use
  Company Number: BR-ABBVIE-15K-020-1471699-00

PATIENT
  Sex: Female

DRUGS (5)
  1. PREDNISONE. [Concomitant]
     Active Substance: PREDNISONE
     Indication: RHEUMATIC DISORDER
  2. ARPADOL [Concomitant]
     Indication: RHEUMATIC DISORDER
     Route: 048
  3. HUMIRA [Suspect]
     Active Substance: ADALIMUMAB
     Indication: RHEUMATOID ARTHRITIS
     Route: 058
     Dates: start: 20070101
  4. PREDNISONE. [Concomitant]
     Active Substance: PREDNISONE
     Indication: RHEUMATOID ARTHRITIS
     Route: 048
  5. SULGLIC [Concomitant]
     Indication: BONE DISORDER
     Route: 048

REACTIONS (5)
  - Osteoarthritis [Unknown]
  - Muscular weakness [Not Recovered/Not Resolved]
  - Arthralgia [Not Recovered/Not Resolved]
  - Gait inability [Unknown]
  - Gait disturbance [Unknown]

NARRATIVE: CASE EVENT DATE: 2015
